FAERS Safety Report 11428401 (Version 1)
Quarter: 2015Q3

REPORT INFORMATION
  Report Type: Spontaneous
  Country: US (occurrence: US)
  Receive Date: 20150828
  Receipt Date: 20150828
  Transmission Date: 20151125
  Serious: No
  Sender: FDA-Public Use
  Company Number: US-ROCHE-1224135

PATIENT
  Sex: Female

DRUGS (7)
  1. ALEVE [Concomitant]
     Active Substance: NAPROXEN SODIUM
     Indication: ARTHRALGIA
     Route: 065
  2. MELATONIN [Concomitant]
     Active Substance: MELATONIN
  3. COPEGUS [Suspect]
     Active Substance: RIBAVIRIN
     Indication: CHRONIC HEPATITIS C
     Route: 048
     Dates: start: 20130509
  4. ALEVE [Concomitant]
     Active Substance: NAPROXEN SODIUM
     Indication: ARTHRALGIA
  5. TYLENOL [Concomitant]
     Active Substance: ACETAMINOPHEN
     Indication: ARTHRALGIA
     Route: 065
  6. PEGASYS [Suspect]
     Active Substance: PEGINTERFERON ALFA-2A
     Indication: CHRONIC HEPATITIS C
     Route: 058
     Dates: start: 20130509
  7. TYLENOL [Concomitant]
     Active Substance: ACETAMINOPHEN
     Indication: ARTHRALGIA
     Route: 065

REACTIONS (14)
  - Abdominal discomfort [Unknown]
  - Arthralgia [Unknown]
  - Influenza like illness [Recovered/Resolved]
  - Dizziness [Unknown]
  - Stress [Unknown]
  - Decreased appetite [Unknown]
  - Muscle spasms [Unknown]
  - Loss of consciousness [Unknown]
  - Weight decreased [Unknown]
  - Nausea [Recovered/Resolved]
  - Eating disorder [Unknown]
  - Insomnia [Recovered/Resolved]
  - Migraine [Recovered/Resolved]
  - Fatigue [Unknown]
